FAERS Safety Report 8936374 (Version 1)
Quarter: 2012Q4

REPORT INFORMATION
  Report Type: 
  Country: DE (occurrence: DE)
  Receive Date: 20121130
  Receipt Date: 20121130
  Transmission Date: 20130627
  Serious: Yes (Other)
  Sender: FDA-Public Use
  Company Number: DE-JNJFOC-20121112583

PATIENT
  Age: 78 Year
  Sex: Female

DRUGS (1)
  1. SIMPONI [Suspect]
     Indication: POLYARTHRITIS
     Dosage: started in approximately 2008 or 2009
     Route: 058

REACTIONS (1)
  - Depression [Unknown]
